FAERS Safety Report 7656258-9 (Version None)
Quarter: 2011Q3

REPORT INFORMATION
  Report Type: 
  Country: None (occurrence: None)
  Receive Date: 20110804
  Receipt Date: 20110725
  Transmission Date: 20111222
  Serious: Yes (Hospitalization, Other)
  Sender: FDA-Public Use
  Company Number: US-ELI_LILLY_AND_COMPANY-US200908000189

PATIENT
  Sex: Male

DRUGS (7)
  1. HUMALOG [Suspect]
     Indication: DIABETES MELLITUS
     Dosage: UNK, AS NEEDED
     Dates: start: 19940101
  2. HUMULIN R [Suspect]
     Dosage: UNK, AS NEEDED
     Dates: start: 19940101
  3. LANTUS [Concomitant]
     Indication: DIABETES MELLITUS
     Dosage: 17 U, UNKNOWN
  4. PROGRAF [Concomitant]
  5. HUMALOG [Suspect]
     Dosage: UNK, AS NEEDED
     Dates: start: 19940101
  6. LANTUS [Concomitant]
     Dosage: 22 U, UNKNOWN
  7. HUMULIN R [Suspect]
     Indication: DIABETES MELLITUS
     Dosage: UNK, AS NEEDED
     Dates: start: 19940101

REACTIONS (9)
  - INTENTIONAL DRUG MISUSE [None]
  - BLOOD GLUCOSE INCREASED [None]
  - LABORATORY TEST ABNORMAL [None]
  - PROSTATE CANCER [None]
  - CROHN'S DISEASE [None]
  - EXPIRED DRUG ADMINISTERED [None]
  - POLLAKIURIA [None]
  - FATIGUE [None]
  - RENAL FAILURE [None]
